FAERS Safety Report 24996792 (Version 3)
Quarter: 2025Q2

REPORT INFORMATION
  Report Type: Spontaneous
  Country: US (occurrence: US)
  Receive Date: 20250221
  Receipt Date: 20250421
  Transmission Date: 20250716
  Serious: Yes (Hospitalization, Other)
  Sender: IOVANCE BIOTHERAPEUTICS
  Company Number: US-IOVANCE BIOTHERAPEUTICS, INC-2024IOV000128

PATIENT

DRUGS (7)
  1. AMTAGVI [Suspect]
     Active Substance: LIFILEUCEL
     Indication: Metastatic malignant melanoma
     Route: 042
     Dates: start: 20241210, end: 20241210
  2. ALDESLEUKIN [Suspect]
     Active Substance: ALDESLEUKIN
     Indication: Interleukin therapy
     Route: 042
     Dates: start: 20241212, end: 20241212
  3. ALDESLEUKIN [Suspect]
     Active Substance: ALDESLEUKIN
     Route: 042
     Dates: start: 20241213, end: 20241213
  4. ALDESLEUKIN [Suspect]
     Active Substance: ALDESLEUKIN
     Route: 042
     Dates: start: 20241215, end: 20241215
  5. CYCLOPHOSPHAMIDE [Suspect]
     Active Substance: CYCLOPHOSPHAMIDE
     Indication: Lymphodepletion
     Route: 042
     Dates: start: 20241202, end: 20241203
  6. FLUDARABINE [Suspect]
     Active Substance: FLUDARABINE PHOSPHATE
     Indication: Lymphodepletion
     Route: 042
     Dates: start: 20241204, end: 20241208
  7. OXYGEN [Concomitant]
     Active Substance: OXYGEN
     Indication: Hypoxia
     Route: 045

REACTIONS (4)
  - Illness [Recovering/Resolving]
  - Cytokine release syndrome [Recovered/Resolved]
  - Tumour lysis syndrome [Recovered/Resolved]
  - Capillary leak syndrome [Unknown]

NARRATIVE: CASE EVENT DATE: 20241201
